FAERS Safety Report 20651070 (Version 1)
Quarter: 2022Q1

REPORT INFORMATION
  Report Type: Spontaneous
  Country: JP (occurrence: JP)
  Receive Date: 20220329
  Receipt Date: 20220329
  Transmission Date: 20220423
  Serious: Yes (Other)
  Sender: FDA-Public Use
  Company Number: JP-TEVA-2022-JP-2021378

PATIENT
  Age: 85 Year
  Sex: Female

DRUGS (9)
  1. PREDNISOLONE [Suspect]
     Active Substance: PREDNISOLONE
     Indication: Scleritis
     Dosage: 30 MILLIGRAM DAILY;
     Route: 065
  2. PREDNISOLONE [Suspect]
     Active Substance: PREDNISOLONE
     Dosage: 1 GRAM DAILY; PULSE THERAPY
     Route: 065
  3. PREDNISOLONE [Suspect]
     Active Substance: PREDNISOLONE
     Dosage: 40 MILLIGRAM DAILY;
     Route: 048
  4. PREDNISOLONE [Suspect]
     Active Substance: PREDNISOLONE
     Route: 065
  5. PREDNISOLONE [Suspect]
     Active Substance: PREDNISOLONE
     Dosage: 12.5 MILLIGRAM DAILY;
     Route: 065
  6. CELECOXIB [Suspect]
     Active Substance: CELECOXIB
     Indication: Scleritis
     Route: 065
  7. BETAMETHASONE [Suspect]
     Active Substance: BETAMETHASONE
     Indication: Scleritis
     Route: 065
  8. TRIAMCINOLONE [Suspect]
     Active Substance: TRIAMCINOLONE
     Indication: Scleritis
     Dosage: SUBCONJUNCTIVAL
     Route: 057
  9. RITUXIMAB [Suspect]
     Active Substance: RITUXIMAB
     Indication: Immunosuppressant drug therapy
     Route: 065

REACTIONS (4)
  - Blood immunoglobulin G decreased [Unknown]
  - Cytomegalovirus infection [Unknown]
  - Paradoxical drug reaction [Unknown]
  - Drug ineffective [Unknown]
